FAERS Safety Report 8776229 (Version 1)
Quarter: 2012Q4

REPORT INFORMATION
  Report Type: 
  Country: NL (occurrence: NL)
  Receive Date: 20120905
  Receipt Date: 20120905
  Transmission Date: 20130627
  Serious: Yes (Hospitalization, Other)
  Sender: FDA-Public Use
  Company Number: NL-ELI_LILLY_AND_COMPANY-NL201208004211

PATIENT
  Age: 81 Year
  Sex: Female
  Weight: 57 kg

DRUGS (8)
  1. FORSTEO [Suspect]
     Indication: OSTEOPOROSIS
     Dosage: 20 ug, qd
     Dates: start: 20120731
  2. ASA [Concomitant]
     Indication: ANTICOAGULANT THERAPY
     Dosage: 80 mg, qd
     Dates: start: 2005
  3. CALCIUM CARBONATE W/COLECALCIFEROL [Concomitant]
     Indication: OSTEOPOROSIS
     Dosage: UNK
     Dates: start: 2005
  4. DICLOFENAC NA [Concomitant]
     Indication: PAIN
     Dosage: 50 mg, unknown
     Dates: start: 201206
  5. MACROGOL [Concomitant]
     Indication: CONSTIPATION
     Dosage: UNK
     Dates: start: 2012
  6. MAGNESIUM HYDROXIDE [Concomitant]
     Dosage: 724 mg, 3/W
  7. OMEPRAZOL [Concomitant]
     Dosage: UNK
     Dates: start: 2005
  8. PREGABALIN [Concomitant]
     Indication: PAIN
     Dosage: UNK
     Dates: start: 201206

REACTIONS (11)
  - Hospitalisation [Unknown]
  - General physical health deterioration [Unknown]
  - Bone pain [Not Recovered/Not Resolved]
  - Headache [Not Recovered/Not Resolved]
  - Decreased appetite [Not Recovered/Not Resolved]
  - Weight decreased [Not Recovered/Not Resolved]
  - Dizziness [Not Recovered/Not Resolved]
  - Anxiety [Not Recovered/Not Resolved]
  - Nausea [Not Recovered/Not Resolved]
  - Feeling abnormal [Unknown]
  - Gastrointestinal disorder [Unknown]
